FAERS Safety Report 8136065-3 (Version None)
Quarter: 2012Q1

REPORT INFORMATION
  Report Type: 
  Country: None (occurrence: None)
  Receive Date: 20120214
  Receipt Date: 20120130
  Transmission Date: 20120608
  Serious: Yes (Hospitalization, Other)
  Sender: FDA-Public Use
  Company Number: AU-WATSON-2012-01627

PATIENT
  Age: 47 Year
  Sex: Male

DRUGS (5)
  1. BUPRENORPHINE HYDROCHLORIDE [Suspect]
     Indication: DRUG DEPENDENCE
     Dosage: 32 MG DAILY
     Route: 065
  2. BACLOFEN [Suspect]
     Dosage: 10 MG, TID
     Route: 065
  3. BACLOFEN [Suspect]
     Indication: ALCOHOLISM
     Dosage: 80 MG, UNK
     Route: 065
  4. VENLAFAXINE HYDROCHLORIDE [Suspect]
     Indication: DEPRESSION
     Dosage: 225 MG DAILY
     Route: 065
  5. DIAZEPAM [Suspect]
     Indication: MENTAL DISORDER
     Dosage: UNK
     Route: 065

REACTIONS (8)
  - OVERDOSE [None]
  - HYPERHIDROSIS [None]
  - ANXIOLYTIC THERAPY [None]
  - DISORIENTATION [None]
  - CIRCULATORY COLLAPSE [None]
  - ATAXIA [None]
  - DIZZINESS [None]
  - THERAPEUTIC RESPONSE UNEXPECTED [None]
